FAERS Safety Report 7446275-6 (Version None)
Quarter: 2011Q2

REPORT INFORMATION
  Report Type: 
  Country: None (occurrence: None)
  Receive Date: 20110429
  Receipt Date: 20100511
  Transmission Date: 20111010
  Serious: No
  Sender: FDA-Public Use
  Company Number: US-ASTRAZENECA-2010SE21419

PATIENT
  Age: 30 Month
  Sex: Male

DRUGS (2)
  1. NEXIUM [Suspect]
     Indication: GASTROOESOPHAGEAL REFLUX DISEASE
     Route: 048
     Dates: start: 20100509
  2. EPIPEN [Concomitant]

REACTIONS (3)
  - OROPHARYNGEAL BLISTERING [None]
  - PYREXIA [None]
  - HYPERSOMNIA [None]
